FAERS Safety Report 12895053 (Version 1)
Quarter: 2016Q4

REPORT INFORMATION
  Report Type: Spontaneous
  Country: IT (occurrence: IT)
  Receive Date: 20161029
  Receipt Date: 20161029
  Transmission Date: 20170207
  Serious: Yes (Other)
  Sender: FDA-Public Use
  Company Number: IT-AMGEN-ITANI2016149373

PATIENT
  Age: 11 Year
  Sex: Female

DRUGS (1)
  1. ENBREL [Suspect]
     Active Substance: ETANERCEPT
     Indication: POLYARTHRITIS
     Dosage: UNK
     Route: 065

REACTIONS (2)
  - Hypoglossal nerve paralysis [Recovered/Resolved]
  - Demyelination [Recovered/Resolved]
